FAERS Safety Report 5244118-2 (Version None)
Quarter: 2007Q1

REPORT INFORMATION
  Report Type: 
  Country: None (occurrence: None)
  Receive Date: 20070222
  Receipt Date: 20070213
  Transmission Date: 20070707
  Serious: Yes (Hospitalization)
  Sender: FDA-Public Use
  Company Number: US-BRISTOL-MYERS SQUIBB COMPANY-13677364

PATIENT
  Age: 62 Year
  Sex: Male
  Weight: 71 kg

DRUGS (2)
  1. CISPLATIN [Suspect]
     Dates: start: 20070110, end: 20070110
  2. RADIATION THERAPY [Suspect]
     Dates: start: 20070124, end: 20070124

REACTIONS (9)
  - DEHYDRATION [None]
  - DYSPHAGIA [None]
  - INFECTION [None]
  - LYMPHOPENIA [None]
  - NEUTROPHIL COUNT [None]
  - OPPORTUNISTIC INFECTION [None]
  - PAIN [None]
  - STOMATITIS [None]
  - WHITE BLOOD CELL COUNT DECREASED [None]
